FAERS Safety Report 9117821 (Version 1)
Quarter: 2013Q1

REPORT INFORMATION
  Report Type: Report from Study
  Country: FR (occurrence: FR)
  Receive Date: 20130208
  Receipt Date: 20130208
  Transmission Date: 20140127
  Serious: Yes (Hospitalization)
  Sender: FDA-Public Use
  Company Number: PHHO2013FR002040

PATIENT
  Sex: 0

DRUGS (3)
  1. CGP 57148B [Suspect]
     Indication: ACUTE LYMPHOCYTIC LEUKAEMIA
     Dosage: 400 MG, { 24 H
     Route: 048
     Dates: start: 20120120
  2. URSOLVAN [Concomitant]
     Indication: CHOLESTASIS
     Dosage: 250 MG, BID
     Route: 048
     Dates: start: 20120213
  3. ANDROCUR [Concomitant]
     Dosage: 50 MG, QD
     Route: 048
     Dates: start: 20120104

REACTIONS (1)
  - Febrile bone marrow aplasia [Recovered/Resolved]
